FAERS Safety Report 16238769 (Version 9)
Quarter: 2019Q4

REPORT INFORMATION
  Report Type: Report from Study
  Country: FR (occurrence: FR)
  Receive Date: 20190425
  Receipt Date: 20191218
  Transmission Date: 20200122
  Serious: Yes (Life-Threatening, Hospitalization, Other)
  Sender: FDA-Public Use
  Company Number: FR-ACTELION-A-CH2019-188745

PATIENT
  Age: 22 Year
  Sex: Male
  Weight: 68 kg

DRUGS (9)
  1. DEPAKINE CHRONO [Concomitant]
     Active Substance: VALPROATE SODIUM
  2. UPTRAVI [Suspect]
     Active Substance: SELEXIPAG
     Dosage: 600 MCG, BID
     Route: 048
     Dates: start: 20190410
  3. TRACLEER [Concomitant]
     Active Substance: BOSENTAN
     Indication: PULMONARY ARTERIAL HYPERTENSION
     Dosage: 250 MG, QD
     Route: 048
  4. UPTRAVI [Suspect]
     Active Substance: SELEXIPAG
     Dosage: 400 MCG, BID
     Route: 048
     Dates: start: 20190403
  5. TRILEPTAL [Concomitant]
     Active Substance: OXCARBAZEPINE
  6. ADCIRCA [Concomitant]
     Active Substance: TADALAFIL
     Indication: PULMONARY ARTERIAL HYPERTENSION
     Dosage: 2 DF, QD
  7. ZONEGRAN [Concomitant]
     Active Substance: ZONISAMIDE
     Dosage: 150 MG, BID
     Route: 048
  8. UPTRAVI [Suspect]
     Active Substance: SELEXIPAG
     Indication: PULMONARY ARTERIAL HYPERTENSION
     Dosage: 200 MCG, BID
     Route: 048
     Dates: start: 20190327
  9. UPTRAVI [Suspect]
     Active Substance: SELEXIPAG
     Dosage: 400 MCG, BID
     Route: 048
     Dates: start: 20190423

REACTIONS (12)
  - Decreased appetite [Not Recovered/Not Resolved]
  - Diarrhoea [Recovered/Resolved]
  - Joint stiffness [Not Recovered/Not Resolved]
  - Eructation [Not Recovered/Not Resolved]
  - Hypersomnia [Not Recovered/Not Resolved]
  - Fatigue [Not Recovered/Not Resolved]
  - Epilepsy [Unknown]
  - Headache [Not Recovered/Not Resolved]
  - Pain in jaw [Not Recovered/Not Resolved]
  - Concomitant disease aggravated [Not Recovered/Not Resolved]
  - Seizure [Recovered/Resolved]
  - Speech disorder [Recovered/Resolved]

NARRATIVE: CASE EVENT DATE: 20190327
